FAERS Safety Report 6091923-9 (Version None)
Quarter: 2009Q1

REPORT INFORMATION
  Report Type: 
  Country: None (occurrence: None)
  Receive Date: 20090225
  Receipt Date: 20081023
  Transmission Date: 20090719
  Serious: No
  Sender: FDA-Public Use
  Company Number: A0750330A

PATIENT
  Age: 63 Year
  Sex: Female
  Weight: 62.3 kg

DRUGS (1)
  1. VALTREX [Suspect]
     Route: 048
     Dates: start: 20080912

REACTIONS (2)
  - CONTUSION [None]
  - LIP PAIN [None]
